FAERS Safety Report 8054263-4 (Version None)
Quarter: 2012Q1

REPORT INFORMATION
  Report Type: 
  Country: None (occurrence: None)
  Receive Date: 20120118
  Receipt Date: 20120110
  Transmission Date: 20120608
  Serious: Yes (Other)
  Sender: FDA-Public Use
  Company Number: PHHY2011IT74599

PATIENT
  Age: 75 Year
  Sex: Female

DRUGS (3)
  1. ALENDRONATE SODIUM [Suspect]
     Indication: OSTEOPOROSIS
     Dosage: 70 MG, EVERY 4 WEEKS
  2. PAMIDRONATE DISODIUM [Suspect]
     Indication: OSTEOPOROSIS
     Dosage: 60 MG, EVERY 4 WEEKS
  3. EPOGEN [Concomitant]
     Indication: NEPHROGENIC ANAEMIA

REACTIONS (3)
  - OSTEONECROSIS OF JAW [None]
  - EXPOSED BONE IN JAW [None]
  - PAIN [None]
